FAERS Safety Report 9017996 (Version 1)
Quarter: 2013Q1

REPORT INFORMATION
  Report Type: Spontaneous
  Country: US (occurrence: None)
  Receive Date: 20130110
  Receipt Date: 20130110
  Transmission Date: 20140127
  Serious: No
  Sender: FDA-Public Use
  Company Number: None

PATIENT
  Age: 42 Year
  Sex: Female

DRUGS (1)
  1. RIBAVIRIN [Suspect]
     Indication: HEPATITIS C
     Dosage: 1000MG DAILY PO
     Route: 048
     Dates: start: 20120806

REACTIONS (5)
  - Vision blurred [None]
  - Chest pain [None]
  - Dyspnoea [None]
  - Stomatitis [None]
  - Stomatitis [None]
